FAERS Safety Report 7774742-4 (Version None)
Quarter: 2011Q3

REPORT INFORMATION
  Report Type: 
  Country: None (occurrence: None)
  Receive Date: 20110923
  Receipt Date: 20110916
  Transmission Date: 20111222
  Serious: Yes (Hospitalization)
  Sender: FDA-Public Use
  Company Number: US-ROCHE-780431

PATIENT
  Sex: Female
  Weight: 115.7 kg

DRUGS (31)
  1. ACTEMRA [Suspect]
     Indication: RHEUMATOID ARTHRITIS
     Dosage: STARTING DOSE: 4 MG/KG
     Route: 042
     Dates: start: 20110421
  2. CALCIUM CARBONATE [Concomitant]
     Dosage: 1200 MG PM
  3. LIDODERM [Concomitant]
     Indication: PAIN
  4. BUMETANIDE [Concomitant]
  5. ZETIA [Concomitant]
  6. GABAPENTIN [Concomitant]
     Dosage: 300 MG QAM, 600 MG QPM
  7. CYCLOPHOSPHAMIDE [Concomitant]
  8. ACTEMRA [Suspect]
     Route: 042
     Dates: start: 20110713
  9. ETODOLAC [Concomitant]
     Route: 048
  10. ACTEMRA [Suspect]
     Dosage: FORM: INFUSION
     Route: 042
     Dates: start: 20110421, end: 20110513
  11. ACTEMRA [Suspect]
     Route: 042
     Dates: start: 20110608
  12. FOLIC ACID [Concomitant]
     Route: 048
  13. POTASSIUM CHLORIDE [Concomitant]
  14. METHOTREXATE [Concomitant]
     Indication: RHEUMATOID ARTHRITIS
     Dates: start: 20090301
  15. NASONEX [Concomitant]
     Dosage: 2 NASAL SPRAYS IN EACH NOSTRILS. FREQUENCY: PRN
     Route: 050
  16. POTASSIUM [Concomitant]
     Dosage: STRENGTH: 2.5 MEQ
  17. PREDNISONE [Concomitant]
     Indication: RHEUMATOID ARTHRITIS
     Route: 048
  18. PROTONIX [Concomitant]
  19. VOLTAREN [Concomitant]
     Indication: MUSCULOSKELETAL PAIN
  20. ACTEMRA [Suspect]
     Route: 042
     Dates: start: 20110810
  21. ACTEMRA [Suspect]
     Route: 042
     Dates: start: 20110907
  22. HUMEX [Concomitant]
  23. MELATONIN [Concomitant]
  24. SKELAXIN [Concomitant]
  25. BENICAR HCT [Concomitant]
     Indication: BLOOD PRESSURE
  26. CYMBALTA [Concomitant]
     Indication: PAIN
  27. FOLIC ACID [Concomitant]
     Route: 048
  28. LEVOTHYROXINE SODIUM [Concomitant]
  29. ACTEMRA [Suspect]
     Route: 042
     Dates: start: 20110609
  30. AMBIEN [Concomitant]
     Indication: SOMNOLENCE
  31. CARVEDILOL [Concomitant]

REACTIONS (5)
  - NEUTROPHIL COUNT DECREASED [None]
  - DIARRHOEA HAEMORRHAGIC [None]
  - WHITE BLOOD CELL COUNT DECREASED [None]
  - ABDOMINAL PAIN [None]
  - RASH [None]
